FAERS Safety Report 17735041 (Version 2)
Quarter: 2021Q2

REPORT INFORMATION
  Report Type: Spontaneous
  Country: US (occurrence: US)
  Receive Date: 20200501
  Receipt Date: 20210521
  Transmission Date: 20210716
  Serious: No
  Sender: FDA-Public Use
  Company Number: US-RADIUS HEALTH INC.-2020US000861

PATIENT
  Sex: Female

DRUGS (2)
  1. TYMLOS [Suspect]
     Active Substance: ABALOPARATIDE
     Dosage: 80MCG, QD
     Route: 058
     Dates: start: 20200121
  2. TYMLOS [Suspect]
     Active Substance: ABALOPARATIDE
     Indication: OSTEOPOROSIS POSTMENOPAUSAL
     Dosage: 80MCG, QD
     Route: 058
     Dates: start: 20200121

REACTIONS (6)
  - Wrong technique in product usage process [Recovered/Resolved]
  - Accidental overdose [Recovered/Resolved]
  - Arthralgia [Unknown]
  - Product quality issue [Unknown]
  - Joint swelling [Unknown]
  - Post procedural complication [Not Recovered/Not Resolved]
